FAERS Safety Report 17135733 (Version 2)
Quarter: 2020Q1

REPORT INFORMATION
  Report Type: Report from Study
  Country: DE (occurrence: DE)
  Receive Date: 20191210
  Receipt Date: 20200127
  Transmission Date: 20200409
  Serious: Yes (Other)
  Sender: FDA-Public Use
  Company Number: DE-PFIZER INC-2019526267

PATIENT
  Age: 64 Year
  Sex: Female
  Weight: 71 kg

DRUGS (5)
  1. PERTUZUMAB. [Suspect]
     Active Substance: PERTUZUMAB
     Dosage: 420 MG, UNK
     Route: 065
     Dates: end: 20191017
  2. EPIRUBICIN HCL [Suspect]
     Active Substance: EPIRUBICIN HYDROCHLORIDE
     Indication: BREAST CANCER
     Dosage: 156.6 MG, CYCLIC
     Route: 065
     Dates: start: 20190815
  3. CYCLOPHOSPHAMIDE. [Suspect]
     Active Substance: CYCLOPHOSPHAMIDE
     Indication: BREAST CANCER
     Dosage: 1044 MG, 1X/DAY
     Route: 065
     Dates: start: 20190815
  4. PERTUZUMAB. [Suspect]
     Active Substance: PERTUZUMAB
     Indication: BREAST CANCER
     Dosage: 840 MG, 1X/DAY
     Route: 065
     Dates: start: 20190815
  5. TRASTUZUMAB, HYALURONIDASE (HUMAN RECOMBINANT) [Suspect]
     Active Substance: HYALURONIDASE (HUMAN RECOMBINANT)\TRASTUZUMAB
     Indication: BREAST CANCER
     Dosage: 600 MG, 1X/DAY
     Route: 058
     Dates: start: 20190815, end: 20191017

REACTIONS (2)
  - Polyneuropathy [Recovering/Resolving]
  - Decreased appetite [Recovering/Resolving]

NARRATIVE: CASE EVENT DATE: 20191029
